FAERS Safety Report 14679749 (Version 1)
Quarter: 2018Q1

REPORT INFORMATION
  Report Type: Spontaneous
  Country: TH (occurrence: TH)
  Receive Date: 20180326
  Receipt Date: 20180326
  Transmission Date: 20180509
  Serious: Yes (Hospitalization)
  Sender: FDA-Public Use
  Company Number: TH-ASTELLAS-2018US014716

PATIENT
  Age: 70 Year
  Sex: Female

DRUGS (1)
  1. MYCAMINE [Suspect]
     Active Substance: MICAFUNGIN SODIUM
     Indication: PRODUCT USED FOR UNKNOWN INDICATION
     Dosage: 100 UNK, ONCE DAILY
     Route: 065

REACTIONS (1)
  - Hypokalaemia [Unknown]
